FAERS Safety Report 20958595 (Version 1)
Quarter: 2022Q2

REPORT INFORMATION
  Report Type: Spontaneous
  Country: US (occurrence: None)
  Receive Date: 20220614
  Receipt Date: 20220614
  Transmission Date: 20220720
  Serious: Yes (Life-Threatening, Hospitalization)
  Sender: FDA-Public Use
  Company Number: None

PATIENT
  Age: 39 Year
  Sex: Female
  Weight: 53.52 kg

DRUGS (2)
  1. FLUOXETINE [Suspect]
     Active Substance: FLUOXETINE HYDROCHLORIDE
     Indication: Depression
     Dosage: FREQUENCY : ONCE;?
     Route: 048
     Dates: start: 20210222, end: 20210526
  2. FLUOXETINE [Suspect]
     Active Substance: FLUOXETINE HYDROCHLORIDE
     Indication: Anxiety

REACTIONS (8)
  - Energy increased [None]
  - Inappropriate affect [None]
  - Euphoric mood [None]
  - Poor quality sleep [None]
  - Derealisation [None]
  - Suicidal ideation [None]
  - Illusion [None]
  - Substance-induced psychotic disorder [None]

NARRATIVE: CASE EVENT DATE: 20210526
